FAERS Safety Report 19562511 (Version 1)
Quarter: 2021Q3

REPORT INFORMATION
  Report Type: Spontaneous
  Country: PK (occurrence: PK)
  Receive Date: 20210715
  Receipt Date: 20210715
  Transmission Date: 20211014
  Serious: Yes (Death)
  Sender: FDA-Public Use
  Company Number: PK-PFIZER INC-2021842125

PATIENT
  Age: 51 Year
  Sex: Male

DRUGS (7)
  1. METHYLPREDNISOLONE. [Suspect]
     Active Substance: METHYLPREDNISOLONE
     Indication: COVID-19
     Dosage: UNK
  2. TOCILIZUMAB. [Suspect]
     Active Substance: TOCILIZUMAB
     Indication: COVID-19
     Dosage: UNK
  3. LOW MOLECULAR WEIGHT HEPARIN [Concomitant]
     Active Substance: UNSPECIFIED INGREDIENT
     Indication: THROMBOSIS PROPHYLAXIS
     Dosage: 40 MG, 1X/DAY
     Route: 058
  4. HYDROXYCHLOROQUINE [Suspect]
     Active Substance: HYDROXYCHLOROQUINE
     Indication: COVID-19
     Dosage: UNK
  5. HEPARIN [Concomitant]
     Active Substance: HEPARIN SODIUM
     Indication: THROMBOSIS PROPHYLAXIS
     Dosage: 18 UNITS/KG/H
  6. ASPIRIN [ACETYLSALICYLIC ACID] [Concomitant]
     Active Substance: ASPIRIN
     Indication: ISCHAEMIC CEREBRAL INFARCTION
     Dosage: UNK
  7. FRESH FROZEN PLASMA [Concomitant]
     Active Substance: HUMAN PLASMA
     Indication: MELAENA
     Dosage: UNK

REACTIONS (2)
  - Drug ineffective for unapproved indication [Fatal]
  - Off label use [Fatal]
